FAERS Safety Report 14680954 (Version 1)
Quarter: 2018Q1

REPORT INFORMATION
  Report Type: Spontaneous
  Country: None (occurrence: US)
  Receive Date: 20180324
  Receipt Date: 20180324
  Transmission Date: 20180509
  Serious: Yes (Hospitalization)
  Sender: FDA-Public Use
  Company Number: None

PATIENT
  Age: 37 Year
  Sex: Female
  Weight: 102.8 kg

DRUGS (1)
  1. TOPOTECAN [Suspect]
     Active Substance: TOPOTECAN HYDROCHLORIDE
     Dates: end: 20180314

REACTIONS (4)
  - Fatigue [None]
  - Haemoglobin decreased [None]
  - Neutrophil count decreased [None]
  - Asthenia [None]

NARRATIVE: CASE EVENT DATE: 20180312
